FAERS Safety Report 5410180-7 (Version None)
Quarter: 2007Q3

REPORT INFORMATION
  Report Type: 
  Country: None (occurrence: None)
  Receive Date: 20070809
  Receipt Date: 20070802
  Transmission Date: 20080115
  Serious: Yes (Hospitalization)
  Sender: FDA-Public Use
  Company Number: US-BOEHRINGER INGELHEIM PHARMACEUTICALS, INC.-2007-DE-04592GD

PATIENT
  Age: 53 Year
  Sex: Male
  Weight: 87 kg

DRUGS (3)
  1. CLONIDINE [Suspect]
     Indication: NERVE BLOCK
     Dosage: 20 ML OF 0.00015% IN 5 ML INCREMENTS FOR 2 TIMES, ADDITIONAL 10 ML OF 0.00015%
  2. ROPIVACAINE [Suspect]
     Indication: NERVE BLOCK
     Dosage: 20 ML OF 0.5% IN 5 ML INCREMENTS FOR TWO TIMES, ADDITIONAL 10 ML OF 0.5%
  3. EPINEPHRINE [Suspect]
     Indication: NERVE BLOCK
     Dosage: 20 ML OF 1:200000 IN 5 ML INCREMENTS FOR TWO TIMES, ADDIONAL 10 ML OF 1:200000

REACTIONS (1)
  - PNEUMOTHORAX [None]
